FAERS Safety Report 9742278 (Version 1)
Quarter: 2013Q4

REPORT INFORMATION
  Report Type: Spontaneous
  Country: US (occurrence: US)
  Receive Date: 20131210
  Receipt Date: 20131210
  Transmission Date: 20140711
  Serious: Yes (Other)
  Sender: FDA-Public Use
  Company Number: US-BAYER-2013-149939

PATIENT
  Age: 64 Year
  Sex: Female

DRUGS (1)
  1. MAGNEVIST [Suspect]
     Indication: NUCLEAR MAGNETIC RESONANCE IMAGING BREAST
     Dosage: 20 ML, ONCE
     Dates: start: 20131203, end: 20131203

REACTIONS (5)
  - Blood pressure increased [None]
  - Palpitations [None]
  - Tremor [None]
  - Chest pain [None]
  - Heart rate increased [None]
